FAERS Safety Report 6062298-6 (Version None)
Quarter: 2009Q1

REPORT INFORMATION
  Report Type: 
  Country: None (occurrence: None)
  Receive Date: 20090203
  Receipt Date: 20090121
  Transmission Date: 20090719
  Serious: Yes (Death, Hospitalization)
  Sender: FDA-Public Use
  Company Number: US-JNJFOC-20090105736

PATIENT
  Sex: Female
  Weight: 52.16 kg

DRUGS (4)
  1. FENTANYL-75 [Suspect]
     Indication: DRUG USE FOR UNKNOWN INDICATION
     Route: 065
  2. PAXIL [Concomitant]
  3. TEGRETOL [Concomitant]
  4. MORPHINE [Concomitant]

REACTIONS (3)
  - ALCOHOLISM [None]
  - DRUG LEVEL INCREASED [None]
  - HEPATIC CIRRHOSIS [None]
